FAERS Safety Report 10075550 (Version 1)
Quarter: 2014Q2

REPORT INFORMATION
  Report Type: Spontaneous
  Country: US (occurrence: None)
  Receive Date: 20140411
  Receipt Date: 20140411
  Transmission Date: 20141212
  Serious: Yes (Hospitalization)
  Sender: FDA-Public Use
  Company Number: None

PATIENT
  Age: 66 Year
  Sex: Female
  Weight: 66.8 kg

DRUGS (2)
  1. CARBOPLATIN [Suspect]
  2. PACLITAXEL [Suspect]

REACTIONS (8)
  - Peripheral swelling [None]
  - Back pain [None]
  - Pelvic pain [None]
  - Hydronephrosis [None]
  - Haemoglobin decreased [None]
  - Anaemia [None]
  - Gastrointestinal disorder [None]
  - Pelvic inflammatory disease [None]
